FAERS Safety Report 21176415 (Version 1)
Quarter: 2022Q3

REPORT INFORMATION
  Report Type: Report from Study
  Country: CA (occurrence: CA)
  Receive Date: 20220805
  Receipt Date: 20220805
  Transmission Date: 20221027
  Serious: Yes (Death)
  Sender: FDA-Public Use
  Company Number: CA-TAKEDA-2022TUS052769

PATIENT
  Age: 38 Year
  Sex: Male

DRUGS (1)
  1. VEDOLIZUMAB [Suspect]
     Active Substance: VEDOLIZUMAB
     Indication: Graft versus host disease
     Dosage: 300 MILLIGRAM
     Route: 042
     Dates: start: 20220525, end: 20220701

REACTIONS (2)
  - Transplantation complication [Fatal]
  - Off label use [Unknown]
